FAERS Safety Report 12204668 (Version 2)
Quarter: 2016Q2

REPORT INFORMATION
  Report Type: Report from Study
  Country: US (occurrence: US)
  Receive Date: 20160323
  Receipt Date: 20160509
  Transmission Date: 20160815
  Serious: Yes (Other)
  Sender: FDA-Public Use
  Company Number: US-AMGEN-USASL2016033885

PATIENT
  Age: 84 Year
  Sex: Female
  Weight: 72.3 kg

DRUGS (10)
  1. PROCRIT [Suspect]
     Active Substance: ERYTHROPOIETIN
     Indication: PRODUCT USED FOR UNKNOWN INDICATION
     Dosage: 60,000 UNITS, EVERY WEEK
     Route: 042
  2. CELEXA [Concomitant]
     Active Substance: CITALOPRAM HYDROBROMIDE
     Dosage: 20 MG, QD
     Route: 048
  3. MYRBETRIQ [Concomitant]
     Active Substance: MIRABEGRON
     Dosage: 25 MG, QD
     Route: 048
  4. FOLIC ACID. [Concomitant]
     Active Substance: FOLIC ACID
     Dosage: 1 MG, QD
     Route: 048
     Dates: start: 20050315
  5. RITUXAN [Concomitant]
     Active Substance: RITUXIMAB
     Indication: LYMPHOMA
     Dosage: UNK UNK, AS NEEDED
     Dates: end: 201502
  6. WARFARIN                           /00014802/ [Concomitant]
     Active Substance: WARFARIN
     Dosage: 2.5 MG, TAKE 3 TABLET(S) EVERY DAY MAY VARY BASED ON INR
     Route: 048
     Dates: start: 20090901
  7. VITAMIN B12 [Concomitant]
     Active Substance: CYANOCOBALAMIN
     Dosage: 1000 MUG, QD
     Route: 048
  8. HEPARIN LOCK FLUSH [Concomitant]
     Active Substance: HEPARIN SODIUM
     Dosage: 500 UNIT, UNK
     Route: 042
  9. COUMADIN [Concomitant]
     Active Substance: WARFARIN SODIUM
     Dosage: UNK
  10. NORMAL SALINE [Concomitant]
     Active Substance: SODIUM CHLORIDE
     Dosage: 10 ML, UNK
     Route: 042

REACTIONS (8)
  - Lymphocytic lymphoma [Unknown]
  - Cold type haemolytic anaemia [Unknown]
  - Haemolytic anaemia [Unknown]
  - Lymphoma [Unknown]
  - Non-Hodgkin^s lymphoma [Unknown]
  - Dry skin [Unknown]
  - Haemolysis [Unknown]
  - Osteoporosis [Unknown]
